FAERS Safety Report 21270770 (Version 1)
Quarter: 2022Q3

REPORT INFORMATION
  Report Type: Spontaneous
  Country: US (occurrence: None)
  Receive Date: 20220830
  Receipt Date: 20220830
  Transmission Date: 20221026
  Serious: Yes (Hospitalization)
  Sender: FDA-Public Use
  Company Number: None

PATIENT
  Age: 68 Year
  Sex: Male
  Weight: 58.6 kg

DRUGS (2)
  1. CARBOPLATIN [Suspect]
     Active Substance: CARBOPLATIN
     Dates: end: 20190717
  2. TAXOTERE [Suspect]
     Active Substance: DOCETAXEL
     Dates: end: 20190717

REACTIONS (5)
  - Mental status changes [None]
  - Fatigue [None]
  - Upper respiratory tract infection [None]
  - Hypercalcaemia [None]
  - Lymphocyte count decreased [None]

NARRATIVE: CASE EVENT DATE: 20190717
